FAERS Safety Report 4378828-6 (Version None)
Quarter: 2004Q2

REPORT INFORMATION
  Report Type: 
  Country: None (occurrence: None)
  Receive Date: 20040601
  Receipt Date: 20040311
  Transmission Date: 20050107
  Serious: No
  Sender: FDA-Public Use
  Company Number: WAES  0403USA01339

PATIENT
  Age: 76 Year
  Sex: Female
  Weight: 64.4108 kg

DRUGS (7)
  1. ZETIA [Suspect]
     Indication: HYPERCHOLESTEROLAEMIA
     Dosage: 10 MG/DAILY/PO
     Route: 048
     Dates: start: 20040304, end: 20040311
  2. ALLEGRA [Concomitant]
  3. ALTACE [Concomitant]
  4. ATACAND HCT [Concomitant]
  5. LEVOTHROID [Concomitant]
  6. NORVASC [Concomitant]
  7. PREMARIN [Concomitant]

REACTIONS (1)
  - MUSCLE CRAMP [None]
